FAERS Safety Report 4834420-8 (Version None)
Quarter: 2005Q4

REPORT INFORMATION
  Report Type: 
  Country: None (occurrence: None)
  Receive Date: 20051114
  Receipt Date: 20051029
  Transmission Date: 20060501
  Serious: Yes (Other)
  Sender: FDA-Public Use
  Company Number: 2005127325

PATIENT
  Age: 11 Year
  Sex: Male
  Weight: 46.2669 kg

DRUGS (8)
  1. ZMAX [Suspect]
     Indication: BRONCHITIS ACUTE
     Dosage: 2 GRAM (2 GRAM, ONCE),
     Dates: start: 20050830
  2. ZMAX [Suspect]
     Indication: UPPER RESPIRATORY TRACT INFECTION
     Dosage: 2 GRAM (2 GRAM, ONCE),
     Dates: start: 20050830
  3. ADDERALL 10 [Suspect]
     Indication: ATTENTION DEFICIT/HYPERACTIVITY DISORDER
     Dosage: 10 MG (10 MG, DAILY), ORAL
     Route: 048
     Dates: start: 20050501, end: 20050909
  4. PROVENTIL [Concomitant]
  5. ADVAIR DISKUS 100/50 [Concomitant]
  6. SINGULAIR ^MERCK^ (MONTELUKAST SODIUM) [Concomitant]
  7. ZYRTEC [Concomitant]
  8. XOPENEX [Concomitant]

REACTIONS (14)
  - ABDOMINAL PAIN [None]
  - CHILLS [None]
  - DRUG INEFFECTIVE [None]
  - DRUG INTERACTION [None]
  - DYSARTHRIA [None]
  - DYSKINESIA [None]
  - EPIGASTRIC DISCOMFORT [None]
  - MALAISE [None]
  - NEUROLOGICAL SYMPTOM [None]
  - PHARYNGITIS [None]
  - RHINITIS [None]
  - SPEECH DISORDER [None]
  - TONGUE PARALYSIS [None]
  - UPPER RESPIRATORY TRACT INFECTION [None]
